FAERS Safety Report 14046826 (Version 1)
Quarter: 2017Q4

REPORT INFORMATION
  Report Type: Spontaneous
  Country: HR (occurrence: HR)
  Receive Date: 20171005
  Receipt Date: 20171005
  Transmission Date: 20180321
  Serious: Yes (Life-Threatening, Hospitalization, Other)
  Sender: FDA-Public Use
  Company Number: HR-TEVA-810913ACC

PATIENT
  Age: 73 Year
  Sex: Female
  Weight: 73 kg

DRUGS (13)
  1. FOLACIN [Concomitant]
     Active Substance: FOLIC ACID
  2. SORTIS [Concomitant]
     Active Substance: ATORVASTATIN
  3. DOXORUBICIN PLIVA [Suspect]
     Active Substance: DOXORUBICIN
     Indication: BREAST CANCER FEMALE
     Route: 042
     Dates: start: 20170706, end: 20170706
  4. ANDOL [Concomitant]
     Active Substance: ASPIRIN
  5. NEBILET [Concomitant]
     Active Substance: NEBIVOLOL
  6. TRICOR [Concomitant]
     Active Substance: FENOFIBRATE
  7. TRAJENTA [Concomitant]
     Active Substance: LINAGLIPTIN
  8. ALOPURINOL [Concomitant]
     Active Substance: ALLOPURINOL
  9. INDAMID SR TABLET [Concomitant]
  10. LANTUS [Concomitant]
     Active Substance: INSULIN GLARGINE
  11. ENDOXAN [Interacting]
     Active Substance: CYCLOPHOSPHAMIDE
     Indication: BREAST CANCER FEMALE
     Route: 042
     Dates: start: 20170706, end: 20170706
  12. CO PERINEVA [Concomitant]
     Active Substance: INDAPAMIDE\PERINDOPRIL ERBUMINE
  13. NOVORAPID [Concomitant]
     Active Substance: INSULIN ASPART
     Dosage: 3 DOSAGE FORMS DAILY;

REACTIONS (4)
  - Thrombocytopenia [Recovered/Resolved]
  - Neutropenia [Recovered/Resolved]
  - Drug interaction [Unknown]
  - Anaphylactic reaction [Recovered/Resolved]

NARRATIVE: CASE EVENT DATE: 20170714
